FAERS Safety Report 6490258-X (Version None)
Quarter: 2009Q4

REPORT INFORMATION
  Report Type: 
  Country: None (occurrence: None)
  Receive Date: 20091211
  Receipt Date: 20091125
  Transmission Date: 20100525
  Serious: Yes (Other)
  Sender: FDA-Public Use
  Company Number: GB-BRACCO-000228

PATIENT
  Sex: Female

DRUGS (1)
  1. NIOPAM [Suspect]
     Indication: ANGIOGRAM
     Route: 065
     Dates: start: 20091124, end: 20091124

REACTIONS (2)
  - MIGRAINE [None]
  - VASOSPASM [None]
